FAERS Safety Report 8445549-X (Version None)
Quarter: 2012Q2

REPORT INFORMATION
  Report Type: 
  Country: None (occurrence: None)
  Receive Date: 20120618
  Receipt Date: 20120502
  Transmission Date: 20120825
  Serious: No
  Sender: FDA-Public Use
  Company Number: US-MYLANLABS-2012S1009029

PATIENT
  Age: 53 Year
  Sex: Male
  Weight: 71.67 kg

DRUGS (4)
  1. MYCOPHENOLATE MOFETIL [Concomitant]
     Indication: RENAL TRANSPLANT
     Route: 048
  2. TACROLIMUS [Suspect]
     Indication: RENAL TRANSPLANT
     Route: 048
     Dates: start: 20120401, end: 20120501
  3. TACROLIMUS [Suspect]
     Route: 048
     Dates: start: 20120501
  4. TACROLIMUS [Suspect]
     Route: 048
     Dates: start: 20120401, end: 20120501

REACTIONS (1)
  - IMMUNOSUPPRESSANT DRUG LEVEL DECREASED [None]
